FAERS Safety Report 9131459 (Version 1)
Quarter: 2013Q1

REPORT INFORMATION
  Report Type: Report from Study
  Country: US (occurrence: US)
  Receive Date: 20130301
  Receipt Date: 20130301
  Transmission Date: 20140127
  Serious: No
  Sender: FDA-Public Use
  Company Number: US-MYLANLABS-2012S1005560

PATIENT
  Age: 25 Year
  Sex: Male
  Weight: 116.12 kg

DRUGS (4)
  1. AMNESTEEM CAPSULES [Suspect]
     Indication: ACNE
     Dates: start: 20111027, end: 20120201
  2. AMNESTEEM CAPSULES [Suspect]
     Indication: ACNE
     Dates: start: 20120201, end: 20120308
  3. CLOBEX /00012002/ [Concomitant]
     Route: 061
     Dates: start: 20110924
  4. DESONIDE [Concomitant]
     Route: 061
     Dates: start: 20110924

REACTIONS (1)
  - Blood triglycerides increased [Not Recovered/Not Resolved]
